FAERS Safety Report 6103181-7 (Version None)
Quarter: 2009Q1

REPORT INFORMATION
  Report Type: 
  Country: None (occurrence: None)
  Receive Date: 20090305
  Receipt Date: 20090225
  Transmission Date: 20090719
  Serious: Yes (Hospitalization)
  Sender: FDA-Public Use
  Company Number: US-ASTRAZENECA-2009UW04164

PATIENT
  Age: 18986 Day
  Sex: Female
  Weight: 53.3 kg

DRUGS (4)
  1. FASLODEX [Suspect]
     Indication: BREAST CANCER METASTATIC
     Dates: start: 20080701, end: 20090210
  2. FASLODEX [Suspect]
     Dates: start: 20090210
  3. BEVACIZUMAB [Suspect]
     Indication: BREAST CANCER METASTATIC
     Dates: start: 20090113, end: 20090210
  4. BEVACIZUMAB [Suspect]
     Dates: start: 20090210

REACTIONS (2)
  - CHEST PAIN [None]
  - THROMBOCYTOPENIA [None]
